FAERS Safety Report 12847354 (Version 1)
Quarter: 2016Q4

REPORT INFORMATION
  Report Type: Spontaneous
  Country: US (occurrence: US)
  Receive Date: 20161014
  Receipt Date: 20161014
  Transmission Date: 20170207
  Serious: No
  Sender: FDA-Public Use
  Company Number: US-ELI_LILLY_AND_COMPANY-US201609010090

PATIENT
  Sex: Male

DRUGS (2)
  1. HUMATROPE [Suspect]
     Active Substance: SOMATROPIN
     Indication: GROWTH HORMONE DEFICIENCY
     Dosage: 1 MG, UNKNOWN
     Route: 065
     Dates: start: 201607
  2. HUMATROPE [Suspect]
     Active Substance: SOMATROPIN
     Dosage: 1 MG, UNKNOWN
     Route: 065

REACTIONS (1)
  - Underdose [Unknown]
